FAERS Safety Report 10231479 (Version 1)
Quarter: 2014Q2

REPORT INFORMATION
  Report Type: Spontaneous
  Country: US (occurrence: US)
  Receive Date: 20140611
  Receipt Date: 20140611
  Transmission Date: 20141212
  Serious: No
  Sender: FDA-Public Use
  Company Number: US-TEVA-486992USA

PATIENT
  Sex: Female
  Weight: 60.38 kg

DRUGS (12)
  1. QNASL [Suspect]
     Indication: SINUS DISORDER
     Dosage: UG/L
     Dates: start: 20140527, end: 20140601
  2. QNASL [Suspect]
     Indication: HYPERSENSITIVITY
  3. DILTIAZEM [Concomitant]
     Indication: HYPERTENSION
  4. LOSARTAN [Concomitant]
     Indication: HYPERTENSION
  5. HYDROCHLOROTHIAZIDE [Concomitant]
     Indication: HYPERTENSION
  6. CRESTOR [Concomitant]
     Indication: BLOOD CHOLESTEROL INCREASED
     Dosage: QHS
  7. MULTIVITAMIN [Concomitant]
  8. FISH OIL [Concomitant]
  9. CALCIUM [Concomitant]
  10. ASPIRIN [Concomitant]
  11. XANAX [Concomitant]
     Indication: ANXIETY
  12. MAGNESIUM [Concomitant]
     Indication: MUSCLE SPASMS

REACTIONS (6)
  - Muscle spasms [Unknown]
  - Rhinalgia [Unknown]
  - Pain in extremity [Unknown]
  - Malaise [Unknown]
  - Hand deformity [Unknown]
  - Pain in extremity [Unknown]
